FAERS Safety Report 7320620-4 (Version None)
Quarter: 2011Q1

REPORT INFORMATION
  Report Type: 
  Country: None (occurrence: None)
  Receive Date: 20110228
  Receipt Date: 20110217
  Transmission Date: 20110831
  Serious: Yes (Other)
  Sender: FDA-Public Use
  Company Number: PHEH2010US02465

PATIENT
  Sex: Female

DRUGS (13)
  1. WARFARIN SODIUM [Suspect]
     Dosage: 4 MG, QD
     Route: 065
  2. DILTIAZEM HYDROCHLORIDE [Concomitant]
     Dosage: 60 MG, UNK
  3. EXELON [Suspect]
     Dosage: 9.5 MG, QD
     Route: 062
     Dates: start: 20090801
  4. CALTRATE [Concomitant]
  5. TYLENOL [Concomitant]
     Dosage: UNK UKN, PRN
  6. BONIVA [Concomitant]
     Dosage: UNK UKN, UNK
     Route: 065
  7. EXELON [Suspect]
     Dosage: 4.6 MG, UNK
     Route: 062
     Dates: start: 20090601
  8. ASPIRIN [Concomitant]
     Dosage: 81 MG, QD
  9. POTASSIUM [Concomitant]
     Dosage: 6 PILLS (3 AT A TIME, TWICE A DAY)
  10. NEXIUM [Concomitant]
     Dosage: 40 MG, UNK
  11. CARDIZEM [Concomitant]
     Dosage: 60 MG, TID
     Route: 065
  12. TRIAMTERENE AND HYDROCHLOROTHIAZID ^HARRIS^ [Concomitant]
     Dosage: 37.5/25 MG, QD
     Route: 065
  13. FUROSEMIDE [Concomitant]

REACTIONS (3)
  - CARBOHYDRATE ANTIGEN 125 INCREASED [None]
  - SKIN CHAPPED [None]
  - APPLICATION SITE PRURITUS [None]
